FAERS Safety Report 20653162 (Version 1)
Quarter: 2022Q1

REPORT INFORMATION
  Report Type: Spontaneous
  Country: GB (occurrence: GB)
  Receive Date: 20220330
  Receipt Date: 20220330
  Transmission Date: 20220423
  Serious: Yes (Death)
  Sender: FDA-Public Use
  Company Number: GB-ELI_LILLY_AND_COMPANY-GB202203011875

PATIENT
  Age: 67 Year
  Sex: Male
  Weight: 116 kg

DRUGS (25)
  1. PEMETREXED [Suspect]
     Active Substance: PEMETREXED
     Indication: Chemotherapy
     Dosage: UNK, UNKNOWN
     Route: 065
     Dates: start: 20210224
  2. BEVACIZUMAB [Suspect]
     Active Substance: BEVACIZUMAB
     Indication: Chemotherapy
     Dosage: UNK, UNKNOWN
     Route: 065
     Dates: start: 20210224
  3. CARBOPLATIN [Suspect]
     Active Substance: CARBOPLATIN
     Indication: Chemotherapy
     Dosage: 625 MG, UNKNOWN
     Route: 065
     Dates: start: 20210224
  4. APREPITANT [Concomitant]
     Active Substance: APREPITANT
     Dosage: 125MG ON DAY 1
     Route: 065
  5. APREPITANT [Concomitant]
     Active Substance: APREPITANT
     Dosage: 80MG DAY 2 AND 3
     Route: 065
     Dates: start: 20210224
  6. BENZYDAMINE HYDROCHLORIDE [Concomitant]
     Active Substance: BENZYDAMINE HYDROCHLORIDE
     Dosage: UNK, UNKNOWN
  7. DEXAMETHASONE [Concomitant]
     Active Substance: DEXAMETHASONE
     Dosage: 04 MG, UNKNOWN
  8. FOLIC ACID [Concomitant]
     Active Substance: FOLIC ACID
     Dosage: 400 UG, DAILY
  9. METOCLOPRAMIDE HYDROCHLORIDE [Concomitant]
     Active Substance: METOCLOPRAMIDE HYDROCHLORIDE
     Dosage: 10 MG, AS NECESSARY
  10. LOPERAMIDE HYDROCHLORIDE [Concomitant]
     Active Substance: LOPERAMIDE HYDROCHLORIDE
     Dosage: 2 MG, PRN
  11. LIPEGFILGRASTIM [Concomitant]
     Active Substance: LIPEGFILGRASTIM
     Dosage: 06 MG, 24HOUR POST CHEMOTHERAPY
  12. PALONOSETRON [Concomitant]
     Active Substance: PALONOSETRON
     Dosage: UNK, UNKNOWN
  13. DAPAGLIFLOZIN [Concomitant]
     Active Substance: DAPAGLIFLOZIN
     Dosage: 10 MG, UNKNOWN
  14. MORPHINE SULFATE [Concomitant]
     Active Substance: MORPHINE SULFATE
     Dosage: 05 MG, 1-2 PER DAY
  15. FELODIPINE [Concomitant]
     Active Substance: FELODIPINE
     Dosage: 05 MG, UNKNOWN
  16. ORAMORPH SR SUSTAINED RELEASE [Concomitant]
     Active Substance: MORPHINE SULFATE
     Dosage: UNK, UNKNOWN
  17. BENDROFLUMETHIAZIDE [Concomitant]
     Active Substance: BENDROFLUMETHIAZIDE
     Dosage: UNK, UNKNOWN
  18. OMEPRAZOLE [Concomitant]
     Active Substance: OMEPRAZOLE
     Dosage: 30 MG, UNKNOWN
  19. PERINDOPRIL [Concomitant]
     Active Substance: PERINDOPRIL
     Dosage: 06 MG, UNKNOWN
  20. BISOPROLOL [Concomitant]
     Active Substance: BISOPROLOL
     Dosage: 2.5 MG, UNKNOWN
  21. METFORMIN [Concomitant]
     Active Substance: METFORMIN HYDROCHLORIDE
     Dosage: 01 UNK, UNKNOWN
  22. PREDNISOLONE [Concomitant]
     Active Substance: PREDNISOLONE
     Dosage: 11 MG, CURRENTLY BEING REDUCED. REDUCING BY 1MG EVERY 5 DAYS UNTIL 5MG AND THEREDUCE SLOWER
  23. GLICLAZIDE [Concomitant]
     Active Substance: GLICLAZIDE
     Dosage: 80 MG, UNKNOWN
  24. DOXAZOSIN [Concomitant]
     Active Substance: DOXAZOSIN MESYLATE
     Dosage: 08 MG, UNKNOWN
  25. SERTRALINE [Concomitant]
     Active Substance: SERTRALINE HYDROCHLORIDE
     Dosage: 50 MG, UNKNOWN

REACTIONS (5)
  - Cardiac arrest [Fatal]
  - Mesothelioma malignant [Fatal]
  - Type 2 diabetes mellitus [Fatal]
  - Anaphylactic reaction [Fatal]
  - Hypertension [Fatal]

NARRATIVE: CASE EVENT DATE: 20210317
